FAERS Safety Report 7961445-6 (Version None)
Quarter: 2011Q4

REPORT INFORMATION
  Report Type: 
  Country: None (occurrence: None)
  Receive Date: 20111207
  Receipt Date: 20111122
  Transmission Date: 20120403
  Serious: Yes (Other)
  Sender: FDA-Public Use
  Company Number: US-ENDO PHARMACEUTICALS INC.-TRIP20110015

PATIENT
  Sex: Female
  Weight: 70.824 kg

DRUGS (3)
  1. NORGESTIMATE/ETHINYL ESTRADIOL [Suspect]
     Indication: CONTRACEPTION
     Dosage: 1 TABLET
     Route: 048
     Dates: start: 20110301
  2. FLUVOXAMINE MALEATE [Suspect]
     Indication: PRODUCT USED FOR UNKNOWN INDICATION
     Dosage: UNKNOWN
     Route: 065
  3. LAMICTAL [Suspect]
     Indication: PRODUCT USED FOR UNKNOWN INDICATION
     Dosage: UNKNOWN
     Route: 065

REACTIONS (5)
  - PREGNANCY ON ORAL CONTRACEPTIVE [None]
  - ABORTION SPONTANEOUS [None]
  - VAGINAL HAEMORRHAGE [None]
  - INTRA-UTERINE DEATH [None]
  - DRUG INEFFECTIVE [None]
